FAERS Safety Report 6436858-4 (Version None)
Quarter: 2009Q4

REPORT INFORMATION
  Report Type: 
  Country: None (occurrence: None)
  Receive Date: 20091111
  Receipt Date: 20091005
  Transmission Date: 20100525
  Serious: No
  Sender: FDA-Public Use
  Company Number: US-ALLERGAN-0913824US

PATIENT
  Age: 72 Year
  Sex: Male

DRUGS (11)
  1. SANCTURA XR [Suspect]
     Indication: HYPERTONIC BLADDER
     Dosage: 60 MG, QAM
     Route: 048
     Dates: start: 20090901
  2. BYETTA [Concomitant]
     Indication: DIABETES MELLITUS
  3. METFORMIN HCL [Concomitant]
     Indication: DIABETES MELLITUS
  4. HUMALOG [Concomitant]
     Indication: DIABETES MELLITUS
     Dosage: UNK
  5. DIGOXIN [Concomitant]
     Indication: ATRIAL FIBRILLATION
  6. METOPROLOL TARTRATE [Concomitant]
  7. TRICOR [Concomitant]
  8. LOVENOX [Concomitant]
  9. LOVAZA [Concomitant]
  10. CYMBALTA [Concomitant]
     Indication: DEPRESSION
  11. VICODIN [Concomitant]

REACTIONS (1)
  - ALOPECIA [None]
